FAERS Safety Report 13271054 (Version 1)
Quarter: 2017Q1

REPORT INFORMATION
  Report Type: Other
  Country: US (occurrence: US)
  Receive Date: 20170226
  Receipt Date: 20170226
  Transmission Date: 20170428
  Serious: Yes (Hospitalization, Other)
  Sender: FDA-Public Use
  Company Number: US-DEXPHARM-20170254

PATIENT
  Age: 57 Year
  Sex: Male

DRUGS (3)
  1. ASPIRIN. [Concomitant]
     Active Substance: ASPIRIN
  2. CLOPIDOGREL [Concomitant]
     Active Substance: CLOPIDOGREL BISULFATE
  3. DICLOFENAC [Suspect]
     Active Substance: DICLOFENAC
     Dosage: DAILY DOSE: 150 MG MILLGRAM(S) EVERY DAYS

REACTIONS (1)
  - Large intestinal stenosis [Recovered/Resolved]
